FAERS Safety Report 21328806 (Version 1)
Quarter: 2022Q3

REPORT INFORMATION
  Report Type: Spontaneous
  Country: JP (occurrence: JP)
  Receive Date: 20220913
  Receipt Date: 20220913
  Transmission Date: 20221027
  Serious: Yes (Other)
  Sender: FDA-Public Use
  Company Number: JP-PFIZER INC-PV202200060048

PATIENT
  Age: 8 Decade
  Sex: Female

DRUGS (1)
  1. SOLANAX [Suspect]
     Active Substance: ALPRAZOLAM
     Indication: Stress
     Dosage: 2 TABLETS, DAILY

REACTIONS (8)
  - Withdrawal syndrome [Unknown]
  - Seizure [Unknown]
  - Colon cancer [Unknown]
  - Somnolence [Unknown]
  - Hyperhidrosis [Unknown]
  - Dyspnoea [Unknown]
  - Headache [Unknown]
  - Dizziness [Unknown]
